FAERS Safety Report 7208303-2 (Version None)
Quarter: 2011Q1

REPORT INFORMATION
  Report Type: 
  Country: None (occurrence: None)
  Receive Date: 20110104
  Receipt Date: 20101223
  Transmission Date: 20110831
  Serious: Yes (Hospitalization)
  Sender: FDA-Public Use
  Company Number: FR-ELI_LILLY_AND_COMPANY-FR201012005802

PATIENT
  Sex: Male

DRUGS (7)
  1. HUMALOG [Suspect]
     Indication: TYPE 2 DIABETES MELLITUS
     Route: 058
  2. NEXIUM [Concomitant]
     Route: 048
  3. KARDEGIC [Concomitant]
  4. AVLOCARDYL [Concomitant]
     Route: 048
  5. INEGY [Concomitant]
     Route: 048
  6. ACETAMINOPHEN W/ PROPOXYPHENE HCL [Concomitant]
     Route: 048
  7. LEVEMIR [Concomitant]

REACTIONS (2)
  - RASH MACULO-PAPULAR [None]
  - ECZEMA [None]
